FAERS Safety Report 13355085 (Version 1)
Quarter: 2017Q1

REPORT INFORMATION
  Report Type: Spontaneous
  Country: US (occurrence: US)
  Receive Date: 20170321
  Receipt Date: 20170321
  Transmission Date: 20170429
  Serious: No
  Sender: FDA-Public Use
  Company Number: US-EISAI MEDICAL RESEARCH-EC-2017-025505

PATIENT
  Sex: Female

DRUGS (1)
  1. BELVIQ XR [Suspect]
     Active Substance: LORCASERIN HYDROCHLORIDE
     Indication: PRODUCT USED FOR UNKNOWN INDICATION
     Route: 048

REACTIONS (3)
  - Drug dose omission [Unknown]
  - Drug ineffective [Unknown]
  - Intentional product misuse [Not Recovered/Not Resolved]
